FAERS Safety Report 12751087 (Version 5)
Quarter: 2021Q1

REPORT INFORMATION
  Report Type: Report from Study
  Country: US (occurrence: US)
  Receive Date: 20160915
  Receipt Date: 20210311
  Transmission Date: 20210419
  Serious: Yes (Other)
  Sender: FDA-Public Use
  Company Number: US-ASTELLAS-2016US030741

PATIENT
  Age: 84 Year
  Sex: Male

DRUGS (3)
  1. ENZALUTAMIDE [Suspect]
     Active Substance: ENZALUTAMIDE
     Indication: PROSTATE CANCER
     Route: 048
     Dates: start: 20160706
  2. ENZALUTAMIDE [Suspect]
     Active Substance: ENZALUTAMIDE
     Indication: BONE CANCER METASTATIC
     Route: 048
  3. ENZALUTAMIDE [Suspect]
     Active Substance: ENZALUTAMIDE
     Route: 048
     Dates: start: 20210205

REACTIONS (12)
  - Oedema peripheral [Unknown]
  - Tinnitus [Unknown]
  - Burning sensation [Unknown]
  - Diarrhoea [Recovering/Resolving]
  - Peripheral swelling [Unknown]
  - Gastrointestinal toxicity [Recovering/Resolving]
  - Decreased appetite [Unknown]
  - Head discomfort [Unknown]
  - Weight fluctuation [Unknown]
  - Tenderness [Unknown]
  - Blood pressure abnormal [Unknown]
  - Hypertension [Unknown]

NARRATIVE: CASE EVENT DATE: 20160706
